FAERS Safety Report 6462753-0 (Version None)
Quarter: 2009Q4

REPORT INFORMATION
  Report Type: 
  Country: None (occurrence: None)
  Receive Date: 20091130
  Receipt Date: 20091124
  Transmission Date: 20100525
  Serious: Yes (Hospitalization)
  Sender: FDA-Public Use
  Company Number: ES-SANOFI-AVENTIS-2009SA004647

PATIENT
  Age: 84 Year
  Sex: Female

DRUGS (10)
  1. SEGURIL [Suspect]
     Indication: RENAL FAILURE CHRONIC
     Route: 048
     Dates: start: 20090101
  2. TRANSTEC [Suspect]
     Indication: MUSCULOSKELETAL PAIN
     Route: 062
     Dates: start: 20090706, end: 20090720
  3. MASDIL [Suspect]
     Indication: HYPERTENSION
     Route: 048
     Dates: start: 20090513, end: 20090725
  4. DIUZINE [Suspect]
     Indication: DRUG USE FOR UNKNOWN INDICATION
     Route: 048
     Dates: start: 20090702
  5. METOTREXATO [Concomitant]
     Indication: RHEUMATOID ARTHRITIS
     Route: 048
     Dates: start: 20090101
  6. PANTECTA [Concomitant]
     Route: 048
     Dates: start: 20090702
  7. GELOCATIL [Concomitant]
     Indication: MUSCULOSKELETAL PAIN
     Route: 048
     Dates: start: 20090702
  8. FROSINOR [Concomitant]
     Route: 048
     Dates: start: 20090702
  9. MINITRAN [Concomitant]
     Route: 062
     Dates: start: 20090702
  10. ACFOL [Concomitant]
     Indication: PROPHYLAXIS
     Route: 048
     Dates: start: 20090702

REACTIONS (6)
  - DISORIENTATION [None]
  - HYPONATRAEMIA [None]
  - NAUSEA [None]
  - PRESYNCOPE [None]
  - SOMNOLENCE [None]
  - VOMITING [None]
